FAERS Safety Report 5940754-6 (Version None)
Quarter: 2008Q4

REPORT INFORMATION
  Report Type: 
  Country: None (occurrence: None)
  Receive Date: 20081030
  Receipt Date: 20081014
  Transmission Date: 20090506
  Serious: Yes (Hospitalization)
  Sender: FDA-Public Use
  Company Number: 003#3#2008-00172

PATIENT
  Age: 81 Year
  Sex: Male

DRUGS (9)
  1. ISOSORBIDE MONONITRATE [Suspect]
     Indication: DRUG USE FOR UNKNOWN INDICATION
  2. OMEPRAZOLE [Suspect]
     Indication: DRUG USE FOR UNKNOWN INDICATION
     Dosage: 40 MG (40 MG 1 IN 1 DAY (S))
  3. AMLODIPINE [Concomitant]
  4. ACETYLSALICYLIC ACID SRT [Concomitant]
  5. ATENOLOL [Concomitant]
  6. ATORVASTATIN CALCIUM [Concomitant]
  7. LISINOPRIL [Concomitant]
  8. OLMESARTAN MEDOXOMIL [Concomitant]
  9. QUININE (QUININE) [Concomitant]

REACTIONS (13)
  - ATRIAL FLUTTER [None]
  - BRADYCARDIA [None]
  - FALL [None]
  - GAIT DISTURBANCE [None]
  - HYPOCALCAEMIA [None]
  - HYPOKALAEMIA [None]
  - HYPOMAGNESAEMIA [None]
  - HYPOTENSION [None]
  - MUSCLE SPASMS [None]
  - PARAESTHESIA [None]
  - POLYURIA [None]
  - URINARY INCONTINENCE [None]
  - URINARY TRACT INFECTION [None]
